FAERS Safety Report 6438970-2 (Version None)
Quarter: 2009Q4

REPORT INFORMATION
  Report Type: 
  Country: None (occurrence: None)
  Receive Date: 20091111
  Receipt Date: 20091111
  Transmission Date: 20100525
  Serious: Yes (Hospitalization, Other)
  Sender: FDA-Public Use
  Company Number: None

PATIENT
  Sex: Male
  Weight: 102.0593 kg

DRUGS (2)
  1. EQUETRO [Suspect]
     Indication: BIPOLAR DISORDER
     Dosage: 200 MG T.I.D. PO
     Route: 048
     Dates: start: 20090801, end: 20091110
  2. DOXYCYCLINE 100 MG LANNETT [Suspect]
     Indication: ACNE
     Dosage: 100 MG Q.D. PO
     Route: 048
     Dates: start: 20090301, end: 20091110

REACTIONS (4)
  - AKATHISIA [None]
  - DYSKINESIA [None]
  - MUSCLE TWITCHING [None]
  - TREMOR [None]
